FAERS Safety Report 5640549-7 (Version None)
Quarter: 2008Q1

REPORT INFORMATION
  Report Type: 
  Country: None (occurrence: None)
  Receive Date: 20080227
  Receipt Date: 20080218
  Transmission Date: 20080703
  Serious: Yes (Hospitalization, Other)
  Sender: FDA-Public Use
  Company Number: PHEH2006US03541

PATIENT
  Age: 71 Year
  Sex: Male
  Weight: 97.505 kg

DRUGS (3)
  1. ZOMETA [Suspect]
     Indication: METASTASES TO BONE
     Dosage: 4 MG, QMO
     Dates: end: 20041215
  2. LIPITOR [Concomitant]
     Dosage: 20 MG, UNK
  3. RANITIDINE [Concomitant]

REACTIONS (12)
  - BONE DEBRIDEMENT [None]
  - BONE PAIN [None]
  - HYPERBARIC OXYGEN THERAPY [None]
  - LYMPHADENOPATHY [None]
  - MASTICATION DISORDER [None]
  - NUCLEAR MAGNETIC RESONANCE IMAGING ABNORMAL [None]
  - OSTEOLYSIS [None]
  - OSTEONECROSIS [None]
  - PAIN [None]
  - PLASMACYTOMA [None]
  - SUBMANDIBULAR MASS [None]
  - SWELLING [None]
